FAERS Safety Report 21805300 (Version 1)
Quarter: 2023Q1

REPORT INFORMATION
  Report Type: Spontaneous
  Country: FR (occurrence: FR)
  Receive Date: 20230102
  Receipt Date: 20230102
  Transmission Date: 20230418
  Serious: Yes (Hospitalization)
  Sender: FDA-Public Use
  Company Number: None

PATIENT
  Age: 72 Year
  Sex: Female
  Weight: 69 kg

DRUGS (4)
  1. IRBESARTAN [Suspect]
     Active Substance: IRBESARTAN
     Indication: Hypertension
     Dosage: 300 MG LE MATIN
     Route: 048
     Dates: start: 20220614, end: 20220720
  2. INDAPAMIDE [Suspect]
     Active Substance: INDAPAMIDE
     Indication: Hypertension
     Dosage: 1.5 MG LE MATIN
     Route: 048
     Dates: start: 20220614, end: 20220713
  3. ALLOPURINOL [Suspect]
     Active Substance: ALLOPURINOL
     Indication: Gout
     Dosage: 100 MG LE SOIR
     Route: 048
     Dates: start: 20220614, end: 20220721
  4. EZETIMIBE [Suspect]
     Active Substance: EZETIMIBE
     Indication: Cataract
     Dosage: 10 MG LE SOIR
     Route: 048
     Dates: start: 20220614, end: 20220719

REACTIONS (1)
  - Drug reaction with eosinophilia and systemic symptoms [Recovered/Resolved]

NARRATIVE: CASE EVENT DATE: 20220715
